FAERS Safety Report 6371937-1 (Version None)
Quarter: 2009Q3

REPORT INFORMATION
  Report Type: 
  Country: None (occurrence: None)
  Receive Date: 20090923
  Receipt Date: 20090921
  Transmission Date: 20100115
  Serious: Yes (Other)
  Sender: FDA-Public Use
  Company Number: US-WYE-H10560709

PATIENT
  Age: 21 Month
  Sex: Male
  Weight: 12.71 kg

DRUGS (1)
  1. ADVIL [Suspect]
     Indication: ACCIDENTAL EXPOSURE
     Route: 048
     Dates: start: 20090809, end: 20090809

REACTIONS (4)
  - ACCIDENTAL DRUG INTAKE BY CHILD [None]
  - ACCIDENTAL OVERDOSE [None]
  - PRODUCT CLOSURE ISSUE [None]
  - RASH [None]
